FAERS Safety Report 4945748-5 (Version None)
Quarter: 2006Q1

REPORT INFORMATION
  Report Type: 
  Country: None (occurrence: None)
  Receive Date: 20060117
  Receipt Date: 20050316
  Transmission Date: 20060701
  Serious: Yes (Other)
  Sender: FDA-Public Use
  Company Number: A03200500736

PATIENT
  Age: 75 Year
  Sex: Female
  Weight: 77.1 kg

DRUGS (11)
  1. PLAVIX [Suspect]
     Indication: STENT PLACEMENT
     Dosage: 75 MG QD-ORAL
     Route: 048
     Dates: start: 20050315
  2. PLAVIX [Suspect]
     Indication: THERAPEUTIC PROCEDURE
     Dosage: 75 MG QD-ORAL
     Route: 048
     Dates: start: 20050315
  3. ROSIGLITAZONE MALEATE [Concomitant]
  4. ATORVASTATIN CALCIUM [Concomitant]
  5. HYDROCHLOROTHIAZIDE [Concomitant]
  6. EZETIMIBE [Concomitant]
  7. ACETYLSALICYLIC ACID SRT [Concomitant]
  8. CARVEDILOL [Concomitant]
  9. SERTRALINE HYDROCHLORIDE [Concomitant]
  10. ENALAPRIL MALEATE [Concomitant]
  11. ZOLPIDEM TARTRATE [Concomitant]

REACTIONS (1)
  - HALLUCINATION, VISUAL [None]
